FAERS Safety Report 5093729-6 (Version None)
Quarter: 2006Q3

REPORT INFORMATION
  Report Type: 
  Country: None (occurrence: None)
  Receive Date: 20060728
  Receipt Date: 20060421
  Transmission Date: 20061208
  Serious: No
  Sender: FDA-Public Use
  Company Number: 252597

PATIENT
  Sex: Female

DRUGS (3)
  1. LEVEMIR [Suspect]
     Indication: INSULIN-REQUIRING TYPE II DIABETES MELLITUS
     Dosage: 10 LU, QD, SUBCUTANEOUS
     Route: 058
     Dates: start: 20060206, end: 20060401
  2. NOVOFINE 30 (NEEDLE) [Concomitant]
  3. METFORMIN HCL [Concomitant]

REACTIONS (1)
  - BLOOD GLUCOSE INCREASED [None]
